FAERS Safety Report 5321033-7 (Version None)
Quarter: 2007Q2

REPORT INFORMATION
  Report Type: 
  Country: None (occurrence: None)
  Receive Date: 20070215
  Receipt Date: 20061121
  Transmission Date: 20071010
  Serious: No
  Sender: FDA-Public Use
  Company Number: 200614213BWH

PATIENT
  Age: 55 Year
  Sex: Male
  Weight: 146.9654 kg

DRUGS (2)
  1. NEXAVAR [Suspect]
     Indication: METASTATIC RENAL CELL CARCINOMA
     Dosage: SEE IMAGE
     Route: 048
     Dates: start: 20060101
  2. NEXAVAR [Suspect]
     Indication: METASTATIC RENAL CELL CARCINOMA
     Dosage: SEE IMAGE
     Route: 048
     Dates: start: 20060602

REACTIONS (9)
  - BLISTER [None]
  - CONSTIPATION [None]
  - DIARRHOEA [None]
  - DYSPHAGIA [None]
  - HEADACHE [None]
  - NAUSEA [None]
  - PALMAR-PLANTAR ERYTHRODYSAESTHESIA SYNDROME [None]
  - PHARYNGOLARYNGEAL PAIN [None]
  - SKIN EXFOLIATION [None]
